FAERS Safety Report 8462340 (Version 2)
Quarter: 2017Q1

REPORT INFORMATION
  Report Type: Spontaneous
  Country: US (occurrence: US)
  Receive Date: 20120316
  Receipt Date: 20170323
  Transmission Date: 20170429
  Serious: No
  Sender: FDA-Public Use
  Company Number: US-PFIZER INC-2012066505

PATIENT
  Age: 59 Year
  Sex: Female
  Weight: 68 kg

DRUGS (6)
  1. METFORMIN [Concomitant]
     Active Substance: METFORMIN HYDROCHLORIDE
     Dosage: UNK
  2. SOMAVERT [Suspect]
     Active Substance: PEGVISOMANT
     Indication: PITUITARY TUMOUR
     Dosage: UNK, 1X/DAY
     Route: 058
     Dates: start: 2005, end: 2009
  3. TAMOXIFEN CITRATE. [Suspect]
     Active Substance: TAMOXIFEN CITRATE
     Indication: PITUITARY TUMOUR
     Dosage: 20 MG, 1X/DAY
     Route: 048
     Dates: start: 2009, end: 2009
  4. TAMOXIFEN CITRATE. [Suspect]
     Active Substance: TAMOXIFEN CITRATE
     Indication: INSULIN-LIKE GROWTH FACTOR INCREASED
  5. DIOVAN HCT [Concomitant]
     Active Substance: HYDROCHLOROTHIAZIDE\VALSARTAN
     Dosage: UNK
  6. SOMAVERT [Suspect]
     Active Substance: PEGVISOMANT
     Indication: INSULIN-LIKE GROWTH FACTOR INCREASED
     Dosage: 30 MG, 1X/DAY (7DAYS/WEEK)
     Dates: start: 200707

REACTIONS (4)
  - Insomnia [Recovered/Resolved]
  - Hot flush [Recovered/Resolved]
  - Weight increased [Unknown]
  - Gastrointestinal disorder [Recovered/Resolved]

NARRATIVE: CASE EVENT DATE: 2009
